FAERS Safety Report 6144352-3 (Version None)
Quarter: 2009Q2

REPORT INFORMATION
  Report Type: 
  Country: None (occurrence: None)
  Receive Date: 20090406
  Receipt Date: 20090325
  Transmission Date: 20091009
  Serious: Yes (Other)
  Sender: FDA-Public Use
  Company Number: JP-PFIZER INC-2009189325

PATIENT

DRUGS (4)
  1. HALCION [Suspect]
     Indication: INSOMNIA
     Dosage: 0.25 MG, UNK
     Dates: start: 20090324, end: 20090325
  2. PLAVIX [Concomitant]
  3. ALLEGRA [Concomitant]
  4. MERISLON [Concomitant]

REACTIONS (2)
  - CEREBRAL INFARCTION [None]
  - HYPOAESTHESIA [None]
